FAERS Safety Report 9369896 (Version 1)
Quarter: 2013Q2

REPORT INFORMATION
  Report Type: Spontaneous
  Country: US (occurrence: None)
  Receive Date: 20130625
  Receipt Date: 20130625
  Transmission Date: 20140414
  Serious: Yes (Hospitalization)
  Sender: FDA-Public Use
  Company Number: None

PATIENT
  Age: 52 Year
  Sex: Male
  Weight: 105.2 kg

DRUGS (2)
  1. HEPARIN [Suspect]
     Indication: DEEP VEIN THROMBOSIS
     Dates: start: 20130326, end: 20130331
  2. HEPARIN [Suspect]
     Indication: PULMONARY EMBOLISM
     Dates: start: 20130326, end: 20130331

REACTIONS (4)
  - Pulmonary embolism [None]
  - Thrombocytopenia [None]
  - Heparin-induced thrombocytopenia [None]
  - Condition aggravated [None]
